FAERS Safety Report 18389629 (Version 1)
Quarter: 2020Q4

REPORT INFORMATION
  Report Type: Report from Study
  Country: CA (occurrence: CA)
  Receive Date: 20201015
  Receipt Date: 20201015
  Transmission Date: 20210114
  Serious: Yes (Hospitalization, Other)
  Sender: FDA-Public Use
  Company Number: CA-JNJFOC-20200834026

PATIENT
  Age: 39 Year
  Sex: Female
  Weight: 52 kg

DRUGS (1)
  1. REMICADE [Suspect]
     Active Substance: INFLIXIMAB
     Indication: CROHN^S DISEASE
     Dosage: LAST INFUSION IN APR-2020 AND NEXT INFUSION WILL BE ON 26-SEP-2020.?REINDUCTION DOSING (0, 2 , 6 WEE
     Route: 042
     Dates: end: 2020

REACTIONS (3)
  - Intestinal resection [Unknown]
  - Fistula [Unknown]
  - Abscess [Unknown]

NARRATIVE: CASE EVENT DATE: 20200729
